FAERS Safety Report 10936389 (Version 3)
Quarter: 2015Q2

REPORT INFORMATION
  Report Type: Spontaneous
  Country: US (occurrence: US)
  Receive Date: 20150321
  Receipt Date: 20150430
  Transmission Date: 20150821
  Serious: No
  Sender: FDA-Public Use
  Company Number: US-BIOGENIDEC-2015BI032326

PATIENT
  Age: 45 Year
  Sex: Male

DRUGS (7)
  1. BACLOFEN. [Concomitant]
     Active Substance: BACLOFEN
     Route: 048
  2. OXYBUTYNIN [Concomitant]
     Active Substance: OXYBUTYNIN
     Route: 048
  3. CITALOPRAM [Concomitant]
     Active Substance: CITALOPRAM HYDROBROMIDE
     Route: 048
  4. PROAIR HFA [Concomitant]
     Active Substance: ALBUTEROL SULFATE
  5. VITAMIN D [Concomitant]
     Active Substance: CHOLECALCIFEROL
  6. TYSABRI [Suspect]
     Active Substance: NATALIZUMAB
     Indication: MULTIPLE SCLEROSIS
     Route: 042
     Dates: start: 20141119, end: 20150204
  7. MACROBID [Concomitant]
     Active Substance: NITROFURANTOIN\NITROFURANTOIN MONOHYDRATE
     Route: 048

REACTIONS (2)
  - Multiple sclerosis relapse [Unknown]
  - Confusional state [Unknown]
